FAERS Safety Report 8344569 (Version 4)
Quarter: 2014Q1

REPORT INFORMATION
  Report Type: Spontaneous
  Country: US (occurrence: US)
  Receive Date: 20120119
  Receipt Date: 20140305
  Transmission Date: 20141002
  Serious: Yes (Other)
  Sender: FDA-Public Use
  Company Number: US-ASTRAZENECA-2012SE02689

PATIENT
  Age: 74 Year
  Sex: Female

DRUGS (13)
  1. ATACAND [Suspect]
     Indication: BLOOD PRESSURE ABNORMAL
     Route: 048
     Dates: start: 200309
  2. ATACAND [Suspect]
     Indication: ATRIOVENTRICULAR BLOCK
     Route: 048
     Dates: start: 200309
  3. TOPROL XL [Suspect]
     Indication: HEART RATE IRREGULAR
     Route: 048
     Dates: start: 200309
  4. ULORIC [Concomitant]
     Indication: GOUT
     Dates: start: 2013
  5. HCTZ [Concomitant]
     Indication: FLUID RETENTION
     Dates: start: 2011
  6. VITAMIN B12 [Concomitant]
     Indication: PRODUCT USED FOR UNKNOWN INDICATION
     Dates: start: 2003
  7. VITAMIN D [Concomitant]
     Indication: BONE DISORDER
  8. VITAMIN D [Concomitant]
     Indication: NAIL DISORDER
  9. BIOTIN [Concomitant]
     Indication: NAIL DISORDER
  10. BIOTIN [Concomitant]
     Indication: HAIR DISORDER
  11. VITAMIN E [Concomitant]
     Indication: NAIL BED DISORDER
     Dates: start: 2003
  12. FOLIC ACID [Concomitant]
     Indication: CARDIAC DISORDER
  13. ASPIRIN [Concomitant]
     Indication: CARDIAC DISORDER
     Dates: start: 2003

REACTIONS (17)
  - Ligament rupture [Unknown]
  - Cyst rupture [Unknown]
  - Fall [Unknown]
  - Eye injury [Unknown]
  - Ligament injury [Unknown]
  - Cyst [Unknown]
  - Thrombosis [Unknown]
  - Adverse event [Unknown]
  - Blood pressure increased [Unknown]
  - Hypokinesia [Unknown]
  - Malaise [Unknown]
  - Musculoskeletal pain [Unknown]
  - Chest pain [Unknown]
  - Arthralgia [Unknown]
  - Adverse drug reaction [Unknown]
  - Palpitations [Unknown]
  - Drug dose omission [Unknown]
